FAERS Safety Report 4320756-6 (Version None)
Quarter: 2004Q1

REPORT INFORMATION
  Report Type: 
  Country: None (occurrence: None)
  Receive Date: 20040315
  Receipt Date: 20031218
  Transmission Date: 20041129
  Serious: No
  Sender: FDA-Public Use
  Company Number: 2003184202US

PATIENT
  Age: 61 Year
  Sex: Male

DRUGS (9)
  1. BEXTRA [Suspect]
     Indication: ARTHRITIS
     Dosage: 10 MG, ORAL
     Route: 048
     Dates: start: 20030901
  2. DARVOCET-N 100 [Concomitant]
  3. COUMADIN [Concomitant]
  4. SYNTHROID [Concomitant]
  5. PREVACID [Concomitant]
  6. LIPITOR [Concomitant]
  7. KLOR-CON [Concomitant]
  8. HYDROCHLOROTHIAZIDE [Concomitant]
  9. ATENOLOL [Concomitant]

REACTIONS (4)
  - BLADDER DISCOMFORT [None]
  - FLUSHING [None]
  - NAUSEA [None]
  - POLLAKIURIA [None]
